FAERS Safety Report 16701510 (Version 1)
Quarter: 2019Q3

REPORT INFORMATION
  Report Type: Spontaneous
  Country: NL (occurrence: NL)
  Receive Date: 20190814
  Receipt Date: 20190814
  Transmission Date: 20191004
  Serious: Yes (Hospitalization)
  Sender: FDA-Public Use
  Company Number: NL-AUROBINDO-AUR-APL-2019-053045

PATIENT

DRUGS (1)
  1. RIZATRIPTAN 10 MG ORODISPERSIBLE TABLETS [Suspect]
     Active Substance: RIZATRIPTAN
     Indication: MIGRAINE
     Dosage: 1 DOSAGE FORM
     Route: 048
     Dates: start: 20180603, end: 20190723

REACTIONS (3)
  - Agitation [Recovering/Resolving]
  - Overdose [Unknown]
  - Aggression [Recovering/Resolving]

NARRATIVE: CASE EVENT DATE: 20190427
